FAERS Safety Report 20249583 (Version 7)
Quarter: 2024Q4

REPORT INFORMATION
  Report Type: Spontaneous
  Country: US (occurrence: US)
  Receive Date: 20211229
  Receipt Date: 20241126
  Transmission Date: 20250114
  Serious: No
  Sender: PFIZER
  Company Number: US-PFIZER INC-202101288809

PATIENT
  Age: 64 Year
  Sex: Female

DRUGS (3)
  1. IBRANCE [Suspect]
     Active Substance: PALBOCICLIB
     Indication: Breast cancer metastatic
     Dosage: 125 MG, CYCLIC (QD X 21 DAYS)
     Dates: start: 20210609
  2. IBRANCE [Suspect]
     Active Substance: PALBOCICLIB
     Dosage: 125 MG, CYCLIC (2 WEEKS OFF AT THE END OF THE MONTH ONE AND TWO)
  3. IBRANCE [Suspect]
     Active Substance: PALBOCICLIB
     Dosage: 125 MG, CYCLIC (TAKE 1 TABLET IN THE MORNING, TAKE 3 WEEKS ON, 1 WEEK OFF, REPEAT EVERY 4 WEEKS)
     Route: 048

REACTIONS (6)
  - Blood test abnormal [Not Recovered/Not Resolved]
  - Chapped lips [Not Recovered/Not Resolved]
  - Toothache [Unknown]
  - Dehydration [Not Recovered/Not Resolved]
  - Oral pain [Recovering/Resolving]
  - White blood cell count decreased [Unknown]
